FAERS Safety Report 9029002 (Version 5)
Quarter: 2013Q2

REPORT INFORMATION
  Report Type: Report from Study
  Country: IN (occurrence: IN)
  Receive Date: 20130123
  Receipt Date: 20130430
  Transmission Date: 20140414
  Serious: Yes (Death, Life-Threatening, Hospitalization, Other)
  Sender: FDA-Public Use
  Company Number: IN-SANOFI-AVENTIS-2013SA003013

PATIENT
  Age: 53 Year
  Sex: Male

DRUGS (3)
  1. DOCETAXEL [Suspect]
     Indication: NON-SMALL CELL LUNG CANCER STAGE IV
     Route: 051
     Dates: start: 20120305, end: 20120913
  2. BLINDED THERAPY [Concomitant]
     Indication: NON-SMALL CELL LUNG CANCER STAGE IV
     Route: 051
     Dates: start: 20120305, end: 20121211
  3. TRAMADOL [Suspect]

REACTIONS (5)
  - Acute respiratory distress syndrome [Fatal]
  - Abdominal pain [Not Recovered/Not Resolved]
  - Headache [Not Recovered/Not Resolved]
  - Blood alkaline phosphatase increased [Unknown]
  - Gamma-glutamyltransferase increased [Unknown]
